FAERS Safety Report 8058231-8 (Version None)
Quarter: 2012Q1

REPORT INFORMATION
  Report Type: 
  Country: None (occurrence: None)
  Receive Date: 20120111
  Receipt Date: 20120103
  Transmission Date: 20120608
  Serious: Yes (Hospitalization, Disabling)
  Sender: FDA-Public Use
  Company Number: 2009SP003346

PATIENT
  Age: 62 Year
  Sex: Female
  Weight: 46.6 kg

DRUGS (8)
  1. ACETAMINOPHEN [Concomitant]
  2. TEMOZOLOMIDE [Suspect]
     Indication: BRAIN NEOPLASM
     Dosage: 105 MG;PO
     Route: 048
     Dates: start: 20081007, end: 20081118
  3. IRON SULPHATE [Concomitant]
  4. PROPOFOL [Concomitant]
  5. ROCURONIUM BROMIDE [Concomitant]
  6. CEFUROXIME [Concomitant]
  7. DEXAMETHASONE [Concomitant]
  8. LANSOPRAZOLE [Concomitant]

REACTIONS (9)
  - BRAIN NEOPLASM [None]
  - NEOPLASM PROGRESSION [None]
  - CHOLESTASIS [None]
  - LIVER INJURY [None]
  - HEPATIC FAILURE [None]
  - HEPATITIS [None]
  - OEDEMA PERIPHERAL [None]
  - BLOOD ALBUMIN DECREASED [None]
  - WEIGHT DECREASED [None]
